FAERS Safety Report 22311187 (Version 2)
Quarter: 2023Q4

REPORT INFORMATION
  Report Type: Spontaneous
  Country: US (occurrence: US)
  Receive Date: 20230511
  Receipt Date: 20231120
  Transmission Date: 20240110
  Serious: No
  Sender: FDA-Public Use
  Company Number: US-PFIZER INC-PV202300080130

PATIENT
  Age: 77 Year
  Sex: Female

DRUGS (2)
  1. IBRANCE [Suspect]
     Active Substance: PALBOCICLIB
     Dosage: 100 MG TAKE 1 (ONE) TABLET (100 MG TOTAL) BY MOUTH ONCE DAILY, FOLLOWED BY 7 DAYS OFF
     Route: 048
  2. XANAX [Concomitant]
     Active Substance: ALPRAZOLAM
     Dosage: TAKE 1 (ONE) TABLET (0.25 MG TOTAL) BY MOUTH ONCE
     Route: 048

REACTIONS (1)
  - Neoplasm progression [Unknown]
